FAERS Safety Report 11382779 (Version 2)
Quarter: 2015Q3

REPORT INFORMATION
  Report Type: Spontaneous
  Country: FR (occurrence: FR)
  Receive Date: 20150814
  Receipt Date: 20150820
  Transmission Date: 20151125
  Serious: Yes (Hospitalization)
  Sender: FDA-Public Use
  Company Number: FR-PFIZER INC-2015263928

PATIENT
  Age: 38 Year
  Sex: Male

DRUGS (3)
  1. RELPAX [Suspect]
     Active Substance: ELETRIPTAN HYDROBROMIDE
     Dosage: 40 MG, AS NEEDED IN CASE OF CRISIS
     Route: 048
  2. ZOMIGORO [Suspect]
     Active Substance: ZOLMITRIPTAN
     Dosage: 2.5 MG, AS NEEDED IN CASE OF CRISIS
     Route: 048
  3. SIBELIUM [Suspect]
     Active Substance: FLUNARIZINE
     Dosage: 0.5 DF OF 10 MG, 1X/DAY IN THE EVENING
     Route: 048
     Dates: end: 20150320

REACTIONS (3)
  - Drug abuse [Recovered/Resolved]
  - Medication overuse headache [Recovered/Resolved]
  - Status migrainosus [Recovered/Resolved]

NARRATIVE: CASE EVENT DATE: 20150320
